FAERS Safety Report 24557093 (Version 2)
Quarter: 2024Q4

REPORT INFORMATION
  Report Type: Report from Study
  Country: US (occurrence: US)
  Receive Date: 20241028
  Receipt Date: 20241116
  Transmission Date: 20250114
  Serious: Yes (Life-Threatening, Hospitalization, Other)
  Sender: AUROBINDO
  Company Number: US-MLMSERVICE-20241008-PI218941-00329-1

PATIENT
  Age: 71 Year
  Sex: Male

DRUGS (8)
  1. GENTAMICIN [Suspect]
     Active Substance: GENTAMICIN
     Indication: Arthritis infective
     Dosage: 240 MILLIGRAM
     Route: 014
  2. GENTAMICIN [Suspect]
     Active Substance: GENTAMICIN
     Indication: Device related infection
  3. TOBRAMYCIN [Suspect]
     Active Substance: TOBRAMYCIN\TOBRAMYCIN SULFATE
     Indication: Arthritis infective
     Dosage: 3.6 GRAM
     Route: 014
  4. TOBRAMYCIN [Suspect]
     Active Substance: TOBRAMYCIN\TOBRAMYCIN SULFATE
     Indication: Device related infection
  5. VANCOMYCIN [Suspect]
     Active Substance: VANCOMYCIN
     Indication: Arthritis infective
     Dosage: 3 GRAM
     Route: 014
  6. VANCOMYCIN [Suspect]
     Active Substance: VANCOMYCIN
     Indication: Device related infection
     Dosage: 1 GRAM
  7. VANCOMYCIN [Suspect]
     Active Substance: VANCOMYCIN
     Dosage: 125 MILLIGRAM
     Route: 048
  8. CEFAZOLIN [Concomitant]
     Active Substance: CEFAZOLIN
     Indication: Arthritis infective
     Dosage: 2 GRAM (2 GRAMS INTRAVENOUSLY EVERY 12 HOURS)
     Route: 042

REACTIONS (2)
  - Acute kidney injury [Recovered/Resolved]
  - Toxicity to various agents [Recovered/Resolved]
